FAERS Safety Report 24717083 (Version 1)
Quarter: 2024Q4

REPORT INFORMATION
  Report Type: Spontaneous
  Country: US (occurrence: None)
  Receive Date: 20241210
  Receipt Date: 20241210
  Transmission Date: 20250115
  Serious: Yes (Hospitalization)
  Sender: Public
  Company Number: None

PATIENT
  Age: 85 Year
  Sex: Male

DRUGS (1)
  1. BEXAROTENE [Suspect]
     Active Substance: BEXAROTENE
     Indication: Cutaneous T-cell lymphoma
     Dosage: OTHER QUANTITY : THIN LAYER DAILY TO LESIONS ONLY;?FREQUENCY : DAILY;?APPLY THIN LAYER DAILY TO LESI
     Route: 061
     Dates: start: 202409

REACTIONS (1)
  - Viral infection [None]

NARRATIVE: CASE EVENT DATE: 20241125
